FAERS Safety Report 26123978 (Version 1)
Quarter: 2025Q4

REPORT INFORMATION
  Report Type: Spontaneous
  Country: US (occurrence: US)
  Receive Date: 20251205
  Receipt Date: 20251205
  Transmission Date: 20260117
  Serious: Yes (Hospitalization, Other)
  Sender: SPECGX
  Company Number: US-SPECGX-T202501932

PATIENT
  Age: 33 Year
  Sex: Female

DRUGS (4)
  1. DEXTROAMPHETAMINE SACCHARATE, AMPHETAMINE ASPARTATE, DEXTROAMPHETAMINE [Suspect]
     Active Substance: AMPHETAMINE ASPARTATE\AMPHETAMINE SULFATE\DEXTROAMPHETAMINE SACCHARATE\DEXTROAMPHETAMINE SULFATE
     Indication: Attention deficit hyperactivity disorder
     Dosage: 20 MILLIGRAM, QD
     Route: 048
  2. FLUOXETINE [Suspect]
     Active Substance: FLUOXETINE HYDROCHLORIDE
     Indication: Major depression
     Dosage: 20 MILLIGRAM, QD
     Route: 048
  3. ARIPIPRAZOLE [Suspect]
     Active Substance: ARIPIPRAZOLE
     Indication: Major depression
     Dosage: 2 MILLIGRAM, QD
     Route: 048
  4. ESCITALOPRAM [Suspect]
     Active Substance: ESCITALOPRAM OXALATE
     Indication: Major depression
     Dosage: 10 MILLIGRAM, QD
     Route: 048

REACTIONS (8)
  - Nausea [Unknown]
  - Vomiting [Unknown]
  - Suicidal ideation [Unknown]
  - Foetal growth restriction [Unknown]
  - Weight decreased [Unknown]
  - Weight increased [Unknown]
  - Decreased appetite [Unknown]
  - Exposure during pregnancy [Unknown]
